FAERS Safety Report 9445809 (Version 1)
Quarter: 2013Q3

REPORT INFORMATION
  Report Type: Report from Study
  Country: US (occurrence: US)
  Receive Date: 20130807
  Receipt Date: 20130807
  Transmission Date: 20140515
  Serious: Yes (Other)
  Sender: FDA-Public Use
  Company Number: US-ELI_LILLY_AND_COMPANY-US201307009981

PATIENT
  Sex: Female

DRUGS (1)
  1. DULOXETINE HYDROCHLORIDE [Suspect]
     Indication: DEPRESSION
     Dosage: 90 MG, EACH MORNING

REACTIONS (20)
  - Suicidal ideation [Unknown]
  - Paraesthesia [Unknown]
  - Dizziness [Unknown]
  - Balance disorder [Unknown]
  - Contusion [Unknown]
  - Diarrhoea [Unknown]
  - Pain [Unknown]
  - Influenza like illness [Unknown]
  - Musculoskeletal stiffness [Unknown]
  - Confusional state [Unknown]
  - Hypoaesthesia [Unknown]
  - Nervousness [Unknown]
  - Pruritus [Unknown]
  - Anxiety [Unknown]
  - Tremor [Unknown]
  - Dry mouth [Unknown]
  - Nausea [Unknown]
  - Affect lability [Unknown]
  - Attention deficit/hyperactivity disorder [Unknown]
  - Drug withdrawal syndrome [Unknown]
